FAERS Safety Report 8392499-3 (Version None)
Quarter: 2012Q2

REPORT INFORMATION
  Report Type: 
  Country: None (occurrence: None)
  Receive Date: 20120529
  Receipt Date: 20120522
  Transmission Date: 20120825
  Serious: No
  Sender: FDA-Public Use
  Company Number: US-PFIZER INC-2012124699

PATIENT
  Sex: Female
  Weight: 65.76 kg

DRUGS (4)
  1. AZITHROMYCIN [Suspect]
     Dosage: 250 MG, 1X/DAY
     Dates: start: 20120521
  2. ANASTROZOLE [Concomitant]
     Indication: BREAST CANCER
     Dosage: UNK
  3. AZITHROMYCIN [Suspect]
     Indication: PRODUCTIVE COUGH
     Dosage: 250MG X 2 TABLETS ON FIRST DAY
     Route: 048
     Dates: start: 20120521, end: 20120521
  4. ASACOL [Concomitant]
     Dosage: UNK

REACTIONS (1)
  - DIARRHOEA [None]
